FAERS Safety Report 5068631-6 (Version None)
Quarter: 2006Q3

REPORT INFORMATION
  Report Type: 
  Country: None (occurrence: None)
  Receive Date: 20060802
  Receipt Date: 20060117
  Transmission Date: 20061208
  Serious: No
  Sender: FDA-Public Use
  Company Number: US-BRISTOL-MYERS SQUIBB COMPANY-13249503

PATIENT
  Age: 57 Year
  Sex: Female
  Weight: 91 kg

DRUGS (14)
  1. COUMADIN [Suspect]
     Indication: AORTIC VALVE REPLACEMENT
     Dosage: CURRENT DOSE REGIMEN:  7.5 MG ONCE DAILY 4 DAYS; 5 MG ONCE DAILY 3 DAYS
  2. COUMADIN [Suspect]
  3. PREDNISONE [Concomitant]
  4. FOLIC ACID [Concomitant]
  5. METHOTREXATE [Concomitant]
  6. VERAPAMIL [Concomitant]
  7. SINGULAIR [Concomitant]
  8. ADVAIR DISKUS 100/50 [Concomitant]
  9. ASCORBIC ACID [Concomitant]
  10. VITAMIN E [Concomitant]
  11. MAGNESIUM [Concomitant]
  12. CALTRATE [Concomitant]
  13. ZINC [Concomitant]
  14. VITAMIN B COMPLEX CAP [Concomitant]

REACTIONS (1)
  - PROTHROMBIN TIME RATIO INCREASED [None]
